FAERS Safety Report 11369045 (Version 1)
Quarter: 2015Q3

REPORT INFORMATION
  Report Type: Report from Study
  Country: US (occurrence: US)
  Receive Date: 20150812
  Receipt Date: 20150812
  Transmission Date: 20151125
  Serious: Yes (Hospitalization, Other)
  Sender: FDA-Public Use
  Company Number: PHHO2011US019916

PATIENT
  Age: 40 Year
  Sex: Female
  Weight: 80.8 kg

DRUGS (4)
  1. PACLITAXEL. [Suspect]
     Active Substance: PACLITAXEL
     Indication: METASTATIC MALIGNANT MELANOMA
     Dosage: 80 MG/M2, UNK
     Route: 042
     Dates: start: 20110926
  2. BEVACIZUMAB [Suspect]
     Active Substance: BEVACIZUMAB
     Indication: METASTATIC MALIGNANT MELANOMA
     Dosage: 10 MG/KG, UNK
     Route: 042
     Dates: start: 20110926
  3. CARBOPLATIN. [Suspect]
     Active Substance: CARBOPLATIN
     Indication: METASTATIC MALIGNANT MELANOMA
     Dosage: AUC 5
     Route: 042
     Dates: start: 20110926
  4. AFINITOR [Suspect]
     Active Substance: EVEROLIMUS
     Indication: METASTATIC MALIGNANT MELANOMA
     Dosage: 5 MG, UNK
     Route: 048
     Dates: start: 20110926, end: 20111118

REACTIONS (3)
  - Jejunal perforation [Unknown]
  - Wound infection [Recovering/Resolving]
  - Pain in extremity [Recovering/Resolving]

NARRATIVE: CASE EVENT DATE: 20111120
